FAERS Safety Report 8937642 (Version 1)
Quarter: 2012Q4

REPORT INFORMATION
  Report Type: Spontaneous
  Country: US (occurrence: None)
  Receive Date: 20120831
  Receipt Date: 20120831
  Transmission Date: 20130627
  Serious: Yes (Life-Threatening, Hospitalization, Other)
  Sender: FDA-Public Use
  Company Number: 2012P1054991

PATIENT
  Age: 13 Year
  Sex: Female

DRUGS (1)
  1. DILTIAZEM [Suspect]

REACTIONS (11)
  - Anuria [None]
  - Hypotension [None]
  - Sinus bradycardia [None]
  - Left ventricular dysfunction [None]
  - Metabolic acidosis [None]
  - Blood lactic acid increased [None]
  - Renal failure acute [None]
  - Haemodialysis [None]
  - Organ failure [None]
  - Toxicity to various agents [None]
  - Intentional overdose [None]
